FAERS Safety Report 8282347-4 (Version None)
Quarter: 2012Q2

REPORT INFORMATION
  Report Type: 
  Country: None (occurrence: None)
  Receive Date: 20120413
  Receipt Date: 20120406
  Transmission Date: 20120825
  Serious: Yes (Other)
  Sender: FDA-Public Use
  Company Number: JP-JNJFOC-20110807845

PATIENT
  Sex: Female

DRUGS (26)
  1. FENTANYL-100 [Suspect]
     Route: 062
     Dates: start: 20110323, end: 20110330
  2. ROPIVACAINE HYDROCHLORIDE [Concomitant]
     Indication: PAIN
     Route: 065
  3. ALOSENN [Concomitant]
     Dosage: AS NECESSARY
     Route: 048
     Dates: start: 20110508
  4. CODEINE PHOSPHATE [Concomitant]
     Route: 048
     Dates: start: 20110616, end: 20110622
  5. PURSENNID [Concomitant]
     Dosage: AS NECESSARY
     Route: 048
     Dates: start: 20110406, end: 20110505
  6. ATARAX [Concomitant]
     Route: 048
     Dates: start: 20110415, end: 20111220
  7. ATARAX [Concomitant]
     Route: 048
     Dates: start: 20110408, end: 20110414
  8. HALCION [Concomitant]
     Dosage: AS NECESSARY
     Route: 048
     Dates: start: 20110506, end: 20111108
  9. PROCHLORPERAZINE [Concomitant]
     Indication: PAIN
     Dosage: AS NECESSARY
     Route: 048
     Dates: start: 20110511, end: 20110801
  10. FENTANYL-100 [Suspect]
     Indication: PAIN
     Route: 062
     Dates: start: 20110420
  11. CODEINE PHOSPHATE [Concomitant]
     Route: 048
     Dates: start: 20110413, end: 20110419
  12. FENTANYL-100 [Suspect]
     Route: 062
     Dates: start: 20110406, end: 20110420
  13. FENTANYL-100 [Suspect]
     Route: 062
     Dates: start: 20110330, end: 20110406
  14. CODEINE PHOSPHATE [Concomitant]
     Route: 048
     Dates: start: 20110323, end: 20110329
  15. CODEINE PHOSPHATE [Concomitant]
     Route: 048
     Dates: start: 20110420
  16. CODEINE PHOSPHATE [Concomitant]
     Route: 048
     Dates: start: 20110406, end: 20110412
  17. ACETAMINOPHEN [Concomitant]
     Indication: PAIN
     Dosage: AS NECESSARY
     Route: 048
     Dates: start: 20110427
  18. CODEINE PHOSPHATE [Concomitant]
     Route: 048
  19. CODEINE PHOSPHATE [Concomitant]
     Route: 048
     Dates: start: 20110330, end: 20110405
  20. CELEBREX [Concomitant]
     Indication: PAIN
     Route: 048
  21. LAXOBERON [Concomitant]
     Dosage: AS NECESSARY (0.8-1.0 ML)
     Route: 048
     Dates: start: 20110408, end: 20110505
  22. FERROUS CITRATE [Concomitant]
     Dosage: AS NECESSARY
     Route: 048
     Dates: start: 20110527, end: 20110624
  23. CODEINE PHOSPHATE [Concomitant]
     Route: 048
  24. PROCHLORPERAZINE [Concomitant]
     Indication: PROPHYLAXIS
     Route: 048
     Dates: start: 20110323, end: 20110405
  25. MAGMITT [Concomitant]
     Indication: PROPHYLAXIS
     Route: 048
     Dates: start: 20110323
  26. LANSOPRAZOLE [Concomitant]
     Dosage: AS NECESSARY
     Route: 048

REACTIONS (5)
  - PRURITUS [None]
  - INSOMNIA [None]
  - CONSTIPATION [None]
  - ANAEMIA [None]
  - SOMNOLENCE [None]
